FAERS Safety Report 22121329 (Version 1)
Quarter: 2023Q1

REPORT INFORMATION
  Report Type: Spontaneous
  Country: US (occurrence: None)
  Receive Date: 20230321
  Receipt Date: 20230321
  Transmission Date: 20230417
  Serious: Yes (Hospitalization)
  Sender: FDA-Public Use
  Company Number: None

PATIENT
  Sex: Female

DRUGS (1)
  1. IBRANCE [Suspect]
     Active Substance: PALBOCICLIB
     Indication: Breast cancer female
     Dosage: 125MG - 1 TABLET 1 TIME  DAILY FOR 21 DAYS, 7 DAYS OFF
     Route: 048
     Dates: start: 20210721

REACTIONS (3)
  - Vomiting [None]
  - Syncope [None]
  - Therapy interrupted [None]
